FAERS Safety Report 18375666 (Version 14)
Quarter: 2024Q3

REPORT INFORMATION
  Report Type: Spontaneous
  Country: US (occurrence: US)
  Receive Date: 20201013
  Receipt Date: 20240709
  Transmission Date: 20241016
  Serious: Yes (Hospitalization, Other)
  Sender: ROCHE
  Company Number: US-ROCHE-2692405

PATIENT
  Age: 13 Year
  Sex: Male
  Weight: 51.0 kg

DRUGS (3)
  1. HEMLIBRA [Suspect]
     Active Substance: EMICIZUMAB-KXWH
     Indication: Factor VIII deficiency
     Dosage: 60MG/0.4ML
     Route: 058
     Dates: start: 202007
  2. HEMLIBRA [Suspect]
     Active Substance: EMICIZUMAB-KXWH
     Dosage: 105 MG/0.4ML
     Route: 058
     Dates: start: 202007
  3. HEMLIBRA [Suspect]
     Active Substance: EMICIZUMAB-KXWH
     Dosage: 105 MG/0.4ML/60MG/0.4ML
     Route: 058
     Dates: start: 202007

REACTIONS (7)
  - Haemorrhage [Unknown]
  - Arthralgia [Unknown]
  - Fall [Unknown]
  - Haemorrhage [Unknown]
  - Ligament sprain [Unknown]
  - Muscle injury [Recovered/Resolved]
  - Haemarthrosis [Unknown]

NARRATIVE: CASE EVENT DATE: 20201001
